FAERS Safety Report 5701416-3 (Version None)
Quarter: 2008Q2

REPORT INFORMATION
  Report Type: 
  Country: None (occurrence: None)
  Receive Date: 20080410
  Receipt Date: 20080331
  Transmission Date: 20081010
  Serious: Yes (Hospitalization)
  Sender: FDA-Public Use
  Company Number: US-MERCK-0804USA00067

PATIENT
  Age: 53 Year
  Sex: Male

DRUGS (4)
  1. ZETIA [Suspect]
     Indication: BLOOD CHOLESTEROL INCREASED
     Route: 048
     Dates: start: 20060911
  2. GLUCOPHAGE [Concomitant]
     Route: 065
  3. LOTREL [Concomitant]
     Route: 065
  4. PENICILLIN (UNSPECIFIED) [Suspect]
     Route: 065
     Dates: start: 20080312, end: 20080312

REACTIONS (6)
  - LIP SWELLING [None]
  - LOCAL SWELLING [None]
  - OEDEMA PERIPHERAL [None]
  - RASH [None]
  - SPEECH DISORDER [None]
  - SWELLING FACE [None]
